FAERS Safety Report 4300601-5 (Version None)
Quarter: 2004Q1

REPORT INFORMATION
  Report Type: 
  Country: None (occurrence: None)
  Receive Date: 20040220
  Receipt Date: 20040216
  Transmission Date: 20041129
  Serious: Yes (Hospitalization)
  Sender: FDA-Public Use
  Company Number: JP-ROCHE-358992

PATIENT
  Age: 65 Year
  Sex: Male

DRUGS (3)
  1. PANALDINE [Suspect]
     Indication: MYOCARDIAL INFARCTION
     Route: 048
     Dates: start: 20020115, end: 20020215
  2. PANALDINE [Suspect]
     Route: 048
     Dates: end: 20020415
  3. ASPIRIN [Concomitant]
     Indication: MYOCARDIAL INFARCTION
     Dosage: ASPIRIN WAS STOPPED IN FEBRUARY 2002 AND RE-INTRODUCED AT A LATER STAGE.
     Route: 048
     Dates: start: 20020115

REACTIONS (1)
  - CRYPTOGENIC ORGANIZING PNEUMONIA [None]
